FAERS Safety Report 11510771 (Version 3)
Quarter: 2015Q4

REPORT INFORMATION
  Report Type: Other
  Country: IT (occurrence: IT)
  Receive Date: 20150915
  Receipt Date: 20151029
  Transmission Date: 20160304
  Serious: Yes (Hospitalization)
  Sender: FDA-Public Use
  Company Number: IT-MYLANLABS-2015M1030930

PATIENT

DRUGS (5)
  1. AMLODIPINA [Suspect]
     Active Substance: AMLODIPINE BESYLATE
     Indication: HYPERTENSION
     Dosage: 2.5 MG, QD
     Route: 048
     Dates: start: 20150703, end: 20150728
  2. SIRIO [Suspect]
     Active Substance: CARBIDOPA\MELEVODOPA
     Indication: PARKINSON^S DISEASE
     Dosage: 125 MG, QD
     Route: 048
     Dates: start: 20141028, end: 20150728
  3. HALCION [Concomitant]
     Active Substance: TRIAZOLAM
     Indication: INSOMNIA
     Dosage: 125 UG
     Route: 048
     Dates: start: 20150703, end: 20150728
  4. TALOFEN [Concomitant]
     Active Substance: PROMAZINE HYDROCHLORIDE
     Indication: NEUROSIS
     Dosage: 20 GTT, UNK
     Route: 048
     Dates: end: 20150907
  5. CITALOPRAM [Suspect]
     Active Substance: CITALOPRAM HYDROBROMIDE
     Indication: POST-TRAUMATIC STRESS DISORDER
     Dosage: 20 MG, QD
     Route: 048
     Dates: start: 20150703, end: 20150728

REACTIONS (4)
  - Bradycardia [Recovered/Resolved]
  - Hypertensive crisis [Recovered/Resolved]
  - Off label use [Unknown]
  - Post-traumatic stress disorder [Unknown]

NARRATIVE: CASE EVENT DATE: 20150703
